FAERS Safety Report 8377570-4 (Version None)
Quarter: 2012Q2

REPORT INFORMATION
  Report Type: 
  Country: None (occurrence: None)
  Receive Date: 20120522
  Receipt Date: 20120510
  Transmission Date: 20120825
  Serious: Yes (Hospitalization)
  Sender: FDA-Public Use
  Company Number: FR-PFIZER INC-2012113995

PATIENT
  Age: 65 Year
  Sex: Female
  Weight: 153 kg

DRUGS (5)
  1. BROMAZEPAM [Concomitant]
     Indication: ANXIETY
     Dosage: 0.2 IU, UNK
     Route: 048
     Dates: start: 20120419, end: 20120503
  2. ESCITALOPRAM [Concomitant]
     Indication: DEPRESSION
     Dosage: 15 MG, 1X/DAY
     Route: 048
     Dates: start: 20120419
  3. IRBESARTAN [Concomitant]
     Indication: HYPERTENSION
     Dosage: 150 MG, 1X/DAY
     Route: 048
     Dates: start: 20120419
  4. SUTENT [Suspect]
     Indication: METASTATIC RENAL CELL CARCINOMA
     Dosage: 50 MG, UNK
     Route: 048
     Dates: start: 20120206, end: 20120504
  5. OXYCODONE [Concomitant]
     Indication: PAIN
     Dosage: 30 MG, 1X/DAY
     Route: 048
     Dates: start: 20120414, end: 20120504

REACTIONS (2)
  - CONFUSIONAL STATE [None]
  - DISORIENTATION [None]
